FAERS Safety Report 14684591 (Version 2)
Quarter: 2018Q3

REPORT INFORMATION
  Report Type: Spontaneous
  Country: US (occurrence: US)
  Receive Date: 20180327
  Receipt Date: 20180929
  Transmission Date: 20181010
  Serious: Yes (Death, Hospitalization, Other)
  Sender: FDA-Public Use
  Company Number: US-BRISTOL-MYERS SQUIBB COMPANY-BMS-2018-024577

PATIENT
  Age: 69 Year
  Sex: Female
  Weight: 84.3 kg

DRUGS (5)
  1. NULOJIX [Suspect]
     Active Substance: BELATACEPT
     Indication: RENAL TRANSPLANT
     Dosage: UNK
     Route: 042
     Dates: start: 200804
  2. NULOJIX [Suspect]
     Active Substance: BELATACEPT
     Indication: PRODUCT USED FOR UNKNOWN INDICATION
     Dosage: 487.5 MG, UNK
     Route: 042
     Dates: start: 2013
  3. NULOJIX [Suspect]
     Active Substance: BELATACEPT
     Indication: PRODUCT USED FOR UNKNOWN INDICATION
     Dosage: 437.5 MG, UNK
     Route: 042
     Dates: start: 201706
  4. NULOJIX [Suspect]
     Active Substance: BELATACEPT
     Indication: PRODUCT USED FOR UNKNOWN INDICATION
     Dosage: 437.5 MG, UNK
     Route: 042
     Dates: start: 201501, end: 201706
  5. NULOJIX [Suspect]
     Active Substance: BELATACEPT
     Indication: PRODUCT USED FOR UNKNOWN INDICATION
     Dosage: UNK
     Route: 042
     Dates: start: 201801

REACTIONS (3)
  - Post procedural complication [Unknown]
  - Aortic arteriosclerosis [Unknown]
  - Death [Fatal]

NARRATIVE: CASE EVENT DATE: 20180228
